FAERS Safety Report 14200304 (Version 1)
Quarter: 2017Q4

REPORT INFORMATION
  Report Type: Spontaneous
  Country: IT (occurrence: IT)
  Receive Date: 20171117
  Receipt Date: 20171117
  Transmission Date: 20180321
  Serious: Yes (Hospitalization)
  Sender: FDA-Public Use
  Company Number: IT-CIPLA LTD.-2017IT20125

PATIENT

DRUGS (3)
  1. METFORMIN [Suspect]
     Active Substance: METFORMIN HYDROCHLORIDE
     Dosage: 95.2 G, UNK
     Route: 048
  2. PIOGLITAZONE. [Suspect]
     Active Substance: PIOGLITAZONE
     Dosage: 1.6 G, UNK
     Route: 048
  3. INSULIN GLARGINE [Suspect]
     Active Substance: INSULIN GLARGINE
     Dosage: 40 UI
     Route: 065

REACTIONS (6)
  - Lactic acidosis [Recovered/Resolved]
  - Hypoglycaemia [Recovered/Resolved]
  - Suicide attempt [Unknown]
  - Shock [Recovered/Resolved]
  - Respiratory arrest [Recovered/Resolved]
  - Intentional overdose [Unknown]
